FAERS Safety Report 6880367-5 (Version None)
Quarter: 2010Q3

REPORT INFORMATION
  Report Type: 
  Country: None (occurrence: None)
  Receive Date: 20100728
  Receipt Date: 20100722
  Transmission Date: 20110219
  Serious: Yes (Death)
  Sender: FDA-Public Use
  Company Number: GB-KINGPHARMUSA00001-K201000918

PATIENT
  Age: 48 Year
  Sex: Female

DRUGS (4)
  1. EPIPEN [Suspect]
     Indication: ANAPHYLACTIC REACTION
     Dosage: 0.3 MG, SINGLE
     Route: 030
  2. PROMETHAZINE [Suspect]
     Indication: ANAPHYLACTIC REACTION
     Dosage: 50 MG, SINGLE
     Route: 051
  3. ANTIHISTAMINES [Concomitant]
     Indication: ANAPHYLACTIC REACTION
  4. PREDNISOLONE [Concomitant]
     Indication: ANAPHYLACTIC REACTION

REACTIONS (3)
  - GAS GANGRENE [None]
  - INJECTION SITE INFECTION [None]
  - INJECTION SITE PAIN [None]
